FAERS Safety Report 5919632-4 (Version None)
Quarter: 2008Q3

REPORT INFORMATION
  Report Type: 
  Country: None (occurrence: None)
  Receive Date: 20080909
  Receipt Date: 20070814
  Transmission Date: 20090109
  Serious: Yes (Disabling)
  Sender: FDA-Public Use
  Company Number: 163-20785-07071411

PATIENT
  Age: 57 Year
  Sex: Male

DRUGS (5)
  1. THALOMID [Suspect]
     Indication: MULTIPLE MYELOMA
     Dosage: 100MG-150MG, DAILY, ORAL
     Route: 048
     Dates: start: 20060503, end: 20070701
  2. AMBIEN [Concomitant]
  3. MORPHINE [Concomitant]
  4. MORPHINE EXTENDED RELEASE (MORPHINE) [Concomitant]
  5. ASPIRIN [Concomitant]

REACTIONS (3)
  - NEUROPATHY PERIPHERAL [None]
  - PAIN IN EXTREMITY [None]
  - SENSATION OF HEAVINESS [None]
